FAERS Safety Report 8258577-4 (Version None)
Quarter: 2012Q2

REPORT INFORMATION
  Report Type: 
  Country: None (occurrence: None)
  Receive Date: 20120404
  Receipt Date: 20120326
  Transmission Date: 20120825
  Serious: Yes (Other)
  Sender: FDA-Public Use
  Company Number: US-BAYER-2012-029686

PATIENT
  Age: 69 Year
  Sex: Female
  Weight: 172 kg

DRUGS (6)
  1. NEO-SYNEPHRINE EXTRA STRENGTH [Suspect]
     Indication: NASAL CONGESTION
     Dosage: 1 PUFF(S), BID
     Route: 055
     Dates: start: 20110101, end: 20120101
  2. STOOL SOFTENER [Concomitant]
  3. ALBUTEROL SULFATE [Concomitant]
  4. ENABLEX [Concomitant]
  5. NEO-SYNEPHRINE EXTRA STRENGTH [Suspect]
     Dosage: 1 PUFF(S), BID
     Route: 055
     Dates: start: 20120101
  6. ASPIRIN [Concomitant]

REACTIONS (5)
  - NASAL MUCOSAL DISORDER [None]
  - DRUG ABUSE [None]
  - RHINALGIA [None]
  - NASAL DRYNESS [None]
  - EPISTAXIS [None]
